FAERS Safety Report 7826388-7 (Version None)
Quarter: 2011Q4

REPORT INFORMATION
  Report Type: 
  Country: None (occurrence: None)
  Receive Date: 20111020
  Receipt Date: 20111014
  Transmission Date: 20120403
  Serious: No
  Sender: FDA-Public Use
  Company Number: US-BIOGENIDEC-2011BI039505

PATIENT
  Age: 28 Year
  Sex: Female

DRUGS (1)
  1. TYSABRI [Suspect]
     Indication: MULTIPLE SCLEROSIS
     Route: 042
     Dates: start: 20111005

REACTIONS (6)
  - DECREASED APPETITE [None]
  - URINARY TRACT INFECTION [None]
  - PYREXIA [None]
  - BACTERAEMIA [None]
  - FATIGUE [None]
  - ASTHENIA [None]
